FAERS Safety Report 4289332-8 (Version None)
Quarter: 2004Q1

REPORT INFORMATION
  Report Type: 
  Country: None (occurrence: None)
  Receive Date: 20040210
  Receipt Date: 20040129
  Transmission Date: 20041129
  Serious: Yes (Death, Hospitalization, Other)
  Sender: FDA-Public Use
  Company Number: PHEH2004US01319

PATIENT
  Age: 52 Year
  Sex: Female

DRUGS (4)
  1. CLOZARIL [Suspect]
     Dosage: 150 MG, QD
     Route: 048
  2. ZOLOFT [Concomitant]
  3. ZYPREXA [Concomitant]
  4. ANAESTHETICS [Suspect]
     Dosage: UNK, UNK

REACTIONS (4)
  - DYSPNOEA [None]
  - PULMONARY EMBOLISM [None]
  - UTERINE CANCER [None]
  - UTERINE OPERATION [None]
